FAERS Safety Report 15541069 (Version 3)
Quarter: 2020Q2

REPORT INFORMATION
  Report Type: Spontaneous
  Country: DE (occurrence: DE)
  Receive Date: 20181023
  Receipt Date: 20200504
  Transmission Date: 20200713
  Serious: Yes (Other)
  Sender: FDA-Public Use
  Company Number: PHHY2018DE132671

PATIENT
  Age: 48 Year
  Sex: Male

DRUGS (1)
  1. GILENYA [Suspect]
     Active Substance: FINGOLIMOD HYDROCHLORIDE
     Indication: RELAPSING MULTIPLE SCLEROSIS
     Dosage: UNK UNK, QD
     Route: 048
     Dates: start: 201509, end: 201610

REACTIONS (6)
  - Renal cancer [Recovered/Resolved]
  - Multiple sclerosis relapse [Unknown]
  - Chronic fatigue syndrome [Unknown]
  - Micturition disorder [Unknown]
  - Chronic kidney disease [Unknown]
  - Polyarthritis [Unknown]

NARRATIVE: CASE EVENT DATE: 201610
